FAERS Safety Report 7986991-0 (Version None)
Quarter: 2011Q4

REPORT INFORMATION
  Report Type: 
  Country: None (occurrence: None)
  Receive Date: 20111216
  Receipt Date: 20111208
  Transmission Date: 20120403
  Serious: Yes (Disabling, Other)
  Sender: FDA-Public Use
  Company Number: US-BAYER-2011-118430

PATIENT

DRUGS (1)
  1. AVELOX [Suspect]

REACTIONS (2)
  - IRIS DISORDER [None]
  - BLINDNESS [None]
